FAERS Safety Report 7968240-2 (Version None)
Quarter: 2011Q4

REPORT INFORMATION
  Report Type: 
  Country: None (occurrence: None)
  Receive Date: 20111209
  Receipt Date: 20111129
  Transmission Date: 20120403
  Serious: Yes (Hospitalization, Other)
  Sender: FDA-Public Use
  Company Number: PHHY2011JP105251

PATIENT
  Sex: Female
  Weight: 46 kg

DRUGS (5)
  1. CALBLOCK [Concomitant]
     Indication: HYPERTENSION
     Dosage: 16 MG, UNK
     Route: 048
     Dates: start: 20071210
  2. MUCOSOLVAN [Concomitant]
     Dosage: 45 MG, UNK
     Route: 048
     Dates: start: 20070625
  3. DIOVAN HCT [Suspect]
     Indication: HYPERTENSION
     Dosage: 1 DF, DAILY
     Route: 048
     Dates: start: 20100614
  4. ACETAMINOPHEN [Suspect]
     Dosage: 300 MG, DAILY
     Route: 048
     Dates: start: 20070625
  5. TRICOR [Concomitant]
     Dosage: 134 MG, UNK
     Route: 048
     Dates: start: 20070205

REACTIONS (6)
  - BLOOD PRESSURE DIASTOLIC DECREASED [None]
  - HAEMOGLOBIN DECREASED [None]
  - MELAENA [None]
  - MALAISE [None]
  - GASTRIC ULCER [None]
  - GASTRIC ULCER HAEMORRHAGE [None]
